FAERS Safety Report 18727140 (Version 1)
Quarter: 2021Q1

REPORT INFORMATION
  Report Type: Spontaneous
  Country: US (occurrence: US)
  Receive Date: 20210111
  Receipt Date: 20210111
  Transmission Date: 20210419
  Serious: No
  Sender: FDA-Public Use
  Company Number: US-ROCHE-2674038

PATIENT
  Age: 40 Year
  Sex: Male

DRUGS (1)
  1. HEMLIBRA [Suspect]
     Active Substance: EMICIZUMAB-KXWH
     Indication: HAEMOPHILIA
     Route: 058

REACTIONS (5)
  - Drug ineffective [Unknown]
  - Stomach mass [Unknown]
  - Back pain [Unknown]
  - Abdominal pain upper [Unknown]
  - Contusion [Unknown]
